FAERS Safety Report 7571892-2 (Version None)
Quarter: 2011Q2

REPORT INFORMATION
  Report Type: 
  Country: None (occurrence: None)
  Receive Date: 20110624
  Receipt Date: 20100723
  Transmission Date: 20111010
  Serious: No
  Sender: FDA-Public Use
  Company Number: A0872107A

PATIENT
  Age: 68 Year
  Sex: Male

DRUGS (3)
  1. LIPITOR [Concomitant]
  2. VERAMYST [Suspect]
     Indication: MULTIPLE ALLERGIES
     Dosage: 2SPR PER DAY
     Route: 045
     Dates: start: 20090101
  3. DIOVAN [Concomitant]

REACTIONS (1)
  - NERVOUSNESS [None]
